FAERS Safety Report 22916339 (Version 4)
Quarter: 2023Q4

REPORT INFORMATION
  Report Type: Report from Study
  Country: CA (occurrence: CA)
  Receive Date: 20230907
  Receipt Date: 20231017
  Transmission Date: 20240110
  Serious: Yes (Other)
  Sender: FDA-Public Use
  Company Number: CA-TAKEDA-2023TUS086634

PATIENT
  Age: 33 Year
  Sex: Male

DRUGS (3)
  1. VEDOLIZUMAB [Suspect]
     Active Substance: VEDOLIZUMAB
     Indication: Crohn^s disease
     Dosage: 300 MILLIGRAM
     Route: 042
     Dates: start: 20210406
  2. VEDOLIZUMAB [Suspect]
     Active Substance: VEDOLIZUMAB
     Dosage: 300 MILLIGRAM
     Route: 042
  3. VEDOLIZUMAB [Suspect]
     Active Substance: VEDOLIZUMAB
     Dosage: 300 MILLIGRAM, Q4WEEKS
     Route: 042
     Dates: start: 20231011

REACTIONS (8)
  - Rectal haemorrhage [Unknown]
  - Diarrhoea [Unknown]
  - Malaise [Unknown]
  - Frequent bowel movements [Unknown]
  - Therapeutic reaction time decreased [Unknown]
  - Anal fistula [Unknown]
  - Off label use [Unknown]
  - Abdominal pain [Unknown]

NARRATIVE: CASE EVENT DATE: 20231011
